FAERS Safety Report 21057786 (Version 6)
Quarter: 2023Q4

REPORT INFORMATION
  Report Type: Report from Study
  Country: FR (occurrence: FR)
  Receive Date: 20220708
  Receipt Date: 20231110
  Transmission Date: 20240110
  Serious: Yes (Hospitalization, Other)
  Sender: FDA-Public Use
  Company Number: FR-SERVIER-S22006979

PATIENT

DRUGS (8)
  1. PEGASPARGASE [Suspect]
     Active Substance: PEGASPARGASE
     Indication: Acute lymphocytic leukaemia
     Dosage: 1125 IU, D4
     Route: 042
     Dates: start: 20220422, end: 20220422
  2. VINCRISTINE [Suspect]
     Active Substance: VINCRISTINE
     Indication: Acute lymphocytic leukaemia
     Dosage: 0.6 MG, D1, D8, D15
     Route: 042
     Dates: start: 20220419, end: 20220503
  3. METHOTREXATE [Suspect]
     Active Substance: METHOTREXATE
     Indication: Acute lymphocytic leukaemia
     Dosage: 8 MG, D4 AND D31
     Route: 037
     Dates: start: 20220422, end: 20220523
  4. CYCLOPHOSPHAMIDE [Suspect]
     Active Substance: CYCLOPHOSPHAMIDE
     Indication: Acute lymphocytic leukaemia
     Dosage: 460 MG, D29
     Route: 042
     Dates: start: 20220520, end: 20220520
  5. CYTARABINE [Suspect]
     Active Substance: CYTARABINE
     Indication: Acute lymphocytic leukaemia
     Dosage: 34 MG,  ON D31 TO D34 AND D38 TO D41
     Route: 042
     Dates: start: 20220523, end: 20220602
  6. THIOGUANINE [Suspect]
     Active Substance: THIOGUANINE
     Indication: Acute lymphocytic leukaemia
     Dosage: 20 MG, D29 TO D42
     Route: 048
     Dates: start: 20220517, end: 20220530
  7. DOXORUBICIN [Suspect]
     Active Substance: DOXORUBICIN
     Indication: Acute lymphocytic leukaemia
     Dosage: 11.2 MG, D1, D8, D15
     Route: 042
     Dates: start: 20220419, end: 20220503
  8. DEXAMETHASONE [Suspect]
     Active Substance: DEXAMETHASONE
     Indication: Acute lymphocytic leukaemia
     Dosage: 3 MG, QD ON D1 TO D14
     Route: 048
     Dates: start: 20220419, end: 20220502

REACTIONS (2)
  - Portal hypertension [Recovered/Resolved]
  - Venoocclusive disease [Recovered/Resolved]

NARRATIVE: CASE EVENT DATE: 20220605
